FAERS Safety Report 6025333-7 (Version None)
Quarter: 2008Q4

REPORT INFORMATION
  Report Type: 
  Country: None (occurrence: None)
  Receive Date: 20081231
  Receipt Date: 20081229
  Transmission Date: 20090506
  Serious: Yes (Life-Threatening, Hospitalization)
  Sender: FDA-Public Use
  Company Number: JP-MERCK-0812USA00202

PATIENT

DRUGS (3)
  1. HYZAAR [Suspect]
     Indication: HYPERTENSION
     Route: 048
  2. MEVALOTIN [Concomitant]
     Indication: LIPIDS INCREASED
     Route: 048
  3. NORVASC [Concomitant]
     Indication: HYPERTENSION
     Route: 048

REACTIONS (3)
  - HEPATIC FUNCTION ABNORMAL [None]
  - HYPOKALAEMIA [None]
  - RENAL DISORDER [None]
